FAERS Safety Report 11914390 (Version 2)
Quarter: 2016Q1

REPORT INFORMATION
  Report Type: Report from Study
  Country: VE (occurrence: VE)
  Receive Date: 20160113
  Receipt Date: 20160201
  Transmission Date: 20160526
  Serious: Yes (Death)
  Sender: FDA-Public Use
  Company Number: VE-ABBVIE-16K-178-1536653-00

PATIENT
  Age: 87 Year
  Sex: Female

DRUGS (1)
  1. HUMIRA [Suspect]
     Active Substance: ADALIMUMAB
     Indication: RHEUMATOID ARTHRITIS
     Route: 058
     Dates: start: 2010, end: 201510

REACTIONS (2)
  - Fall [Fatal]
  - Hydronephrosis [Fatal]

NARRATIVE: CASE EVENT DATE: 20151031
